FAERS Safety Report 20245801 (Version 1)
Quarter: 2021Q4

REPORT INFORMATION
  Report Type: Spontaneous
  Country: GB (occurrence: GB)
  Receive Date: 20211229
  Receipt Date: 20211229
  Transmission Date: 20220303
  Serious: Yes (Other)
  Sender: FDA-Public Use
  Company Number: None

PATIENT
  Age: 40 Year
  Sex: Female
  Weight: 70 kg

DRUGS (4)
  1. METHOTREXATE [Suspect]
     Active Substance: METHOTREXATE
     Indication: Psoriatic arthropathy
     Dosage: 7.5MG WEEKLY
     Route: 048
     Dates: start: 20190101, end: 20211210
  2. DULOXETINE [Concomitant]
     Active Substance: DULOXETINE
  3. FOLIC ACID [Concomitant]
     Active Substance: FOLIC ACID
  4. GUSELKUMAB [Concomitant]
     Active Substance: GUSELKUMAB

REACTIONS (2)
  - Accidental exposure to product [Unknown]
  - Maternal exposure before pregnancy [Unknown]
